FAERS Safety Report 14085278 (Version 5)
Quarter: 2018Q1

REPORT INFORMATION
  Report Type: Spontaneous
  Country: US (occurrence: US)
  Receive Date: 20171013
  Receipt Date: 20180330
  Transmission Date: 20180508
  Serious: No
  Sender: FDA-Public Use
  Company Number: US-PFIZER INC-2017137583

PATIENT
  Age: 72 Year
  Sex: Female
  Weight: 101 kg

DRUGS (7)
  1. SUTENT [Suspect]
     Active Substance: SUNITINIB MALATE
     Dosage: 25 MG, DAILY (THREE CAPSULES DAILY AT BEDTIME)
     Route: 048
     Dates: end: 20171105
  2. SUTENT [Suspect]
     Active Substance: SUNITINIB MALATE
     Dosage: 2 DF, DAILY
  3. SUTENT [Suspect]
     Active Substance: SUNITINIB MALATE
     Indication: GASTROINTESTINAL STROMAL TUMOUR
     Dosage: 37.5 MG, DAILY THREE CAPSULES DAILY AT BEDTIME
     Route: 048
     Dates: start: 201702
  4. LISINOPRIL. [Concomitant]
     Active Substance: LISINOPRIL
     Indication: HYPERTENSION
     Dosage: 20 MG, 1X/DAY
     Route: 048
  5. LOVASTATIN. [Concomitant]
     Active Substance: LOVASTATIN
     Indication: BLOOD CHOLESTEROL INCREASED
     Dosage: 20 MG, 1X/DAY
     Route: 048
  6. SUTENT [Suspect]
     Active Substance: SUNITINIB MALATE
     Dosage: UNK
     Dates: end: 20180108
  7. GLIPIZIDE. [Concomitant]
     Active Substance: GLIPIZIDE
     Indication: DIABETES MELLITUS
     Dosage: 10 MG, 2X/DAY (TAKING THIS FOR 7 OR 8 YEARS)
     Route: 048

REACTIONS (19)
  - Gingival blister [Recovering/Resolving]
  - Oral mucosal erythema [Not Recovered/Not Resolved]
  - Rash [Not Recovered/Not Resolved]
  - Abdominal discomfort [Unknown]
  - Tongue ulceration [Recovering/Resolving]
  - Gingival ulceration [Recovering/Resolving]
  - Proctalgia [Recovered/Resolved]
  - Influenza [Unknown]
  - Anorectal disorder [Recovered/Resolved]
  - Vulvovaginal pain [Recovered/Resolved]
  - Tongue blistering [Recovering/Resolving]
  - Weight decreased [Unknown]
  - Oral mucosal blistering [Not Recovered/Not Resolved]
  - Vaginal mucosal blistering [Recovering/Resolving]
  - Vulvovaginal pruritus [Recovered/Resolved]
  - Mucosal inflammation [Recovered/Resolved]
  - Stomatitis [Recovered/Resolved]
  - Feeding disorder [Unknown]
  - Vulvovaginal erythema [Recovered/Resolved]

NARRATIVE: CASE EVENT DATE: 2017
